FAERS Safety Report 5513829-3 (Version None)
Quarter: 2007Q4

REPORT INFORMATION
  Report Type: 
  Country: None (occurrence: None)
  Receive Date: 20071113
  Receipt Date: 20071102
  Transmission Date: 20080405
  Serious: Yes (Hospitalization, Other)
  Sender: FDA-Public Use
  Company Number: US-ELI_LILLY_AND_COMPANY-US200711000594

PATIENT
  Sex: Female
  Weight: 123.36 kg

DRUGS (7)
  1. ZYPREXA [Suspect]
     Indication: BIPOLAR I DISORDER
     Dosage: 5 MG, EACH MORNING
  2. ZYPREXA [Suspect]
     Dosage: 15 MG, EACH EVENING
  3. GEODON [Concomitant]
     Dosage: 160 MG, UNK
  4. CLONAZEPAM [Concomitant]
     Dosage: 0.5 MG, UNK
  5. SINGULAIR [Concomitant]
     Indication: ASTHMA
     Dosage: 10 MG, UNK
  6. LORATADINE [Concomitant]
     Dosage: 10 MG, UNK
  7. PROVERA [Concomitant]
     Dates: start: 20071001, end: 20071001

REACTIONS (7)
  - AGGRESSION [None]
  - BIPOLAR DISORDER [None]
  - INCREASED APPETITE [None]
  - MENSTRUAL DISORDER [None]
  - METABOLIC SYNDROME [None]
  - POLYCYSTIC OVARIES [None]
  - WEIGHT INCREASED [None]
